FAERS Safety Report 4836868-4 (Version None)
Quarter: 2005Q4

REPORT INFORMATION
  Report Type: 
  Country: None (occurrence: None)
  Receive Date: 20051123
  Receipt Date: 20050930
  Transmission Date: 20060501
  Serious: Yes (Hospitalization)
  Sender: FDA-Public Use
  Company Number: US-MERCK-0510USA01972

PATIENT
  Age: 71 Year
  Sex: Female
  Weight: 75 kg

DRUGS (15)
  1. VIOXX [Suspect]
     Indication: ARTHRITIS
     Route: 048
     Dates: start: 20000817, end: 20020422
  2. AMBIEN [Concomitant]
     Route: 065
  3. AUGMENTIN [Concomitant]
     Route: 065
  4. CLONIDINE [Concomitant]
     Route: 065
  5. DETROL [Concomitant]
     Route: 065
  6. DIFLUCAN [Concomitant]
     Route: 065
  7. DOCUSATE CALCIUM [Concomitant]
     Route: 065
  8. LEVAQUIN [Concomitant]
     Route: 065
  9. LIPITOR [Concomitant]
     Route: 065
  10. LOPRESSOR [Concomitant]
     Route: 065
  11. NYSTATIN [Concomitant]
     Route: 065
  12. PREVACID [Concomitant]
     Route: 065
  13. SKELAXIN [Concomitant]
     Route: 065
  14. ZESTRIL [Concomitant]
     Route: 065
  15. ZOCOR [Concomitant]
     Route: 065

REACTIONS (6)
  - AMYOTROPHIC LATERAL SCLEROSIS [None]
  - CARDIAC DISORDER [None]
  - CEREBROVASCULAR ACCIDENT [None]
  - CONDITION AGGRAVATED [None]
  - HYPERTENSION [None]
  - REHABILITATION THERAPY [None]
